FAERS Safety Report 9511949 (Version 1)
Quarter: 2013Q1

REPORT INFORMATION
  Report Type: Spontaneous
  Country: US (occurrence: None)
  Receive Date: 20130305
  Receipt Date: 20130305
  Transmission Date: 20140127
  Serious: Yes (Other)
  Sender: FDA-Public Use
  Company Number: 163-21880-12111144

PATIENT
  Age: 62 Year
  Sex: Female

DRUGS (16)
  1. REVLIMID (LENALIDOMIDE) (25 MILLIGRAM, CAPSULES) [Suspect]
     Indication: PLASMA CELL MYELOMA
     Dosage: 25 MG, 21 IN 28 D, PO
     Route: 048
     Dates: start: 20111107, end: 20120228
  2. DEXAMETHASON [Suspect]
     Indication: PRODUCT USED FOR UNKNOWN INDICATION
     Dosage: 20 MG, QD DAY OF + DAY AFTER EACH VELCADE DOSE, UNK
     Route: 048
     Dates: start: 201111
  3. ASA (ACETYLSALICYLIC ACID) (UNKNOWN) [Concomitant]
  4. BISPHOSPHONATE (BISPHOSPHONATES) (UNKNOWN) [Concomitant]
  5. VELCADE [Concomitant]
  6. ACETAMINOPEN (PARACETAMOL) (TABLETS) [Concomitant]
  7. ACYCLOVIR (ACICLOVIR) (TABLETS) [Concomitant]
  8. BENAZEPRIL (BENAZEPRIL) (TABLETS) [Concomitant]
  9. CALCIUM CITRATE-VITAMIN D (CALCIUM CITRATE W/COLECALCIFEROL) (TABLETS) [Concomitant]
  10. DIPHENHYDRAMINE (DIPHENHYDRAMINE) (CAPSULES)? [Concomitant]
  11. GLUCOSAMINE (GLUCOSAMINE) (500 MILLIGRAM, TABLETS)? [Concomitant]
  12. MOMETASON (MOMETASONE) (SPRAY (NOT INHALATION)) [Concomitant]
  13. MULTIVITAMINS (MULTIVITAMINS) (TABLETS)? [Concomitant]
  14. PAMIDRONATE (PAMIDRONATE DISODIUM) (UNKNOWN) [Concomitant]
  15. TOLTERODINE ER 24HR (TOLTERODINE) (CAPSULES) [Concomitant]
  16. TRIMETHOPRIM-POLYMYXIN B (POLYTRIM) (DROPS) [Concomitant]

REACTIONS (4)
  - Deep vein thrombosis [None]
  - Muscle spasms [None]
  - Constipation [None]
  - Tremor [None]
